FAERS Safety Report 19926297 (Version 1)
Quarter: 2021Q4

REPORT INFORMATION
  Report Type: Spontaneous
  Country: JP (occurrence: JP)
  Receive Date: 20211006
  Receipt Date: 20211006
  Transmission Date: 20220303
  Serious: Yes (Hospitalization, Other)
  Sender: FDA-Public Use
  Company Number: JP-PFIZER INC-2021903409

PATIENT
  Age: 80 Year
  Sex: Female
  Weight: 52 kg

DRUGS (38)
  1. RHEUMATREX [Suspect]
     Active Substance: METHOTREXATE SODIUM
     Indication: Rheumatoid arthritis
     Dosage: 8 MG, WEEKLY (ONEC A WEEK)
     Route: 048
     Dates: start: 20160629, end: 20160711
  2. RHEUMATREX [Suspect]
     Active Substance: METHOTREXATE SODIUM
     Dosage: 8 MG, WEEKLY (ONEC A WEEK)
     Route: 048
     Dates: start: 20160712, end: 20160802
  3. RHEUMATREX [Suspect]
     Active Substance: METHOTREXATE SODIUM
     Dosage: 8 MG, WEEKLY (ONEC A WEEK)
     Route: 048
     Dates: start: 20160803, end: 20160830
  4. RHEUMATREX [Suspect]
     Active Substance: METHOTREXATE SODIUM
     Dosage: 8 MG, WEEKLY (ONEC A WEEK)
     Route: 048
     Dates: start: 20160831, end: 20160927
  5. RHEUMATREX [Suspect]
     Active Substance: METHOTREXATE SODIUM
     Dosage: 8 MG, WEEKLY (ONEC A WEEK)
     Route: 048
     Dates: start: 20160928, end: 20170827
  6. RHEUMATREX [Suspect]
     Active Substance: METHOTREXATE SODIUM
     Dosage: 8 MG, WEEKLY (ONEC A WEEK)
     Route: 048
     Dates: start: 20170829, end: 20180416
  7. RHEUMATREX [Suspect]
     Active Substance: METHOTREXATE SODIUM
     Dosage: 8 MG, WEEKLY (ONEC A WEEK)
     Route: 048
     Dates: start: 20180417, end: 20180611
  8. RHEUMATREX [Suspect]
     Active Substance: METHOTREXATE SODIUM
     Dosage: 8 MG, WEEKLY (ONEC A WEEK)
     Route: 048
     Dates: start: 20180612, end: 20190205
  9. RHEUMATREX [Suspect]
     Active Substance: METHOTREXATE SODIUM
     Dosage: 8 MG, WEEKLY (ONEC A WEEK)
     Route: 048
     Dates: start: 20190206, end: 20191125
  10. RHEUMATREX [Suspect]
     Active Substance: METHOTREXATE SODIUM
     Dosage: 8 MG, WEEKLY (ONEC A WEEK)
     Route: 048
     Dates: start: 20191126, end: 20210610
  11. REMICADE [Suspect]
     Active Substance: INFLIXIMAB
     Indication: Rheumatoid arthritis
     Dosage: 200 MG, EVERY 2 WEEKS
     Route: 041
     Dates: start: 20160715, end: 20160802
  12. REMICADE [Suspect]
     Active Substance: INFLIXIMAB
     Dosage: 200 MG, MONTHLY
     Route: 041
     Dates: start: 20160803, end: 20160830
  13. REMICADE [Suspect]
     Active Substance: INFLIXIMAB
     Dosage: 200 MG, EVERY 8 WEEKS
     Route: 041
     Dates: start: 20160831, end: 20161024
  14. REMICADE [Suspect]
     Active Substance: INFLIXIMAB
     Dosage: 400 MG, MONTHLY
     Route: 041
     Dates: start: 20161025, end: 20210610
  15. RABEPRAZOLE SODIUM [Concomitant]
     Active Substance: RABEPRAZOLE SODIUM
     Indication: Gastrooesophageal reflux disease
     Dosage: 10 MG, 1X/DAY
     Route: 048
     Dates: start: 20160627, end: 20210610
  16. FOLIC ACID [Concomitant]
     Active Substance: FOLIC ACID
     Indication: Folate deficiency
     Dosage: 5 MG, WEEKLY (ONCE A WEEK)
     Route: 048
     Dates: start: 20160712, end: 20210610
  17. IGURATIMOD [Concomitant]
     Active Substance: IGURATIMOD
     Indication: Rheumatoid arthritis
     Dosage: 25 MG, 1X/DAY
     Route: 048
     Dates: start: 20181031, end: 20181225
  18. IGURATIMOD [Concomitant]
     Active Substance: IGURATIMOD
     Dosage: 25 MG, 2X/DAY
     Route: 048
     Dates: start: 20181226, end: 20191028
  19. IGURATIMOD [Concomitant]
     Active Substance: IGURATIMOD
     Dosage: 25 MG, 1X/DAY
     Route: 048
     Dates: start: 20191029, end: 20210610
  20. CALONAL [Concomitant]
     Active Substance: ACETAMINOPHEN
     Indication: Arthralgia
     Dosage: 300 MG, 2X/DAY
     Route: 048
     Dates: start: 20191029, end: 20210610
  21. PREDNISOLONE [Concomitant]
     Active Substance: PREDNISOLONE
     Indication: Rheumatoid arthritis
     Dosage: 10 MG, 1X/DAY
     Route: 048
     Dates: start: 20160627, end: 20160629
  22. PREDNISOLONE [Concomitant]
     Active Substance: PREDNISOLONE
     Dosage: 10 MG, 1X/DAY
     Route: 048
     Dates: start: 20161108, end: 20161110
  23. PREDNISOLONE [Concomitant]
     Active Substance: PREDNISOLONE
     Dosage: 5 MG, 1X/DAY
     Route: 048
     Dates: start: 20161111, end: 20161122
  24. PREDNISOLONE [Concomitant]
     Active Substance: PREDNISOLONE
     Indication: Rheumatoid arthritis
     Dosage: 4 MG, 1X/DAY
     Route: 048
     Dates: start: 20161123, end: 20161220
  25. PREDNISOLONE [Concomitant]
     Active Substance: PREDNISOLONE
     Dosage: 3 MG, 1X/DAY
     Route: 048
     Dates: start: 20161221, end: 20170117
  26. PREDNISOLONE [Concomitant]
     Active Substance: PREDNISOLONE
     Dosage: 2 MG, 1X/DAY
     Route: 048
     Dates: start: 20170118, end: 20170214
  27. PREDNISOLONE [Concomitant]
     Active Substance: PREDNISOLONE
     Dosage: 1 MG, 1X/DAY
     Route: 048
     Dates: start: 20170215, end: 20170314
  28. PREDNISOLONE [Concomitant]
     Active Substance: PREDNISOLONE
     Dosage: 1 MG, ALTERNATE DAY
     Route: 048
     Dates: start: 20170315, end: 20170411
  29. PREDNISOLONE [Concomitant]
     Active Substance: PREDNISOLONE
     Dosage: 1 MG, 1X/DAY
     Route: 048
     Dates: start: 20170606, end: 20170611
  30. PREDNISOLONE [Concomitant]
     Active Substance: PREDNISOLONE
     Dosage: 1 MG, ALTERNATE DAY
     Route: 048
     Dates: start: 20170612, end: 20180710
  31. PREDNISOLONE SODIUM SUCCINATE [Concomitant]
     Active Substance: PREDNISOLONE SODIUM SUCCINATE
     Indication: Rheumatoid arthritis
     Dosage: 20 MG, MONTHLY
     Route: 041
     Dates: start: 20191224, end: 20210610
  32. SULFAMETHOXAZOLE\TRIMETHOPRIM [Concomitant]
     Active Substance: SULFAMETHOXAZOLE\TRIMETHOPRIM
     Indication: Infection prophylaxis
     Dosage: 0.1 G, 1X/DAY
     Route: 048
     Dates: start: 20160713, end: 20160802
  33. SULFAMETHOXAZOLE\TRIMETHOPRIM [Concomitant]
     Active Substance: SULFAMETHOXAZOLE\TRIMETHOPRIM
     Dosage: 0.2 G, 1X/DAY
     Route: 048
     Dates: start: 20160803, end: 20160830
  34. SULFAMETHOXAZOLE\TRIMETHOPRIM [Concomitant]
     Active Substance: SULFAMETHOXAZOLE\TRIMETHOPRIM
     Dosage: 0.3 G, 1X/DAY
     Route: 048
     Dates: start: 20160831, end: 20160926
  35. SULFAMETHOXAZOLE\TRIMETHOPRIM [Concomitant]
     Active Substance: SULFAMETHOXAZOLE\TRIMETHOPRIM
     Dosage: 0.4 G, 1X/DAY
     Route: 048
     Dates: start: 20160927, end: 20161220
  36. SULFAMETHOXAZOLE\TRIMETHOPRIM [Concomitant]
     Active Substance: SULFAMETHOXAZOLE\TRIMETHOPRIM
     Indication: Infection prophylaxis
     Dosage: 0.5 TABLETS, 1X/DAY
     Route: 048
     Dates: start: 20161221, end: 20181127
  37. SULFAMETHOXAZOLE\TRIMETHOPRIM [Concomitant]
     Active Substance: SULFAMETHOXAZOLE\TRIMETHOPRIM
     Dosage: 0.5 TABLETS, THRICE A WEEK
     Route: 048
     Dates: start: 20181128, end: 20191001
  38. SULFAMETHOXAZOLE\TRIMETHOPRIM [Concomitant]
     Active Substance: SULFAMETHOXAZOLE\TRIMETHOPRIM
     Dosage: 0.5 TABLETS, TWICE A WEEK
     Route: 048
     Dates: start: 20191002, end: 20210610

REACTIONS (4)
  - T-cell lymphoma [Recovered/Resolved]
  - Oxygen saturation decreased [Recovered/Resolved]
  - C-reactive protein increased [Recovered/Resolved]
  - Pyrexia [Recovered/Resolved]

NARRATIVE: CASE EVENT DATE: 20210601
